FAERS Safety Report 15390326 (Version 1)
Quarter: 2018Q3

REPORT INFORMATION
  Report Type: Spontaneous
  Country: US (occurrence: US)
  Receive Date: 20180908
  Receipt Date: 20180908
  Transmission Date: 20181010
  Serious: Yes (Life-Threatening, Disabling, Other)
  Sender: FDA-Public Use
  Company Number: None

PATIENT
  Age: 67 Year
  Sex: Female
  Weight: 75.6 kg

DRUGS (7)
  1. FLUCONAZOLE. [Concomitant]
     Active Substance: FLUCONAZOLE
  2. OMEGA 3 [Concomitant]
     Active Substance: OMEGA-3 FATTY ACIDS
  3. MULTIVITAMINS [Concomitant]
     Active Substance: VITAMINS
  4. GARLIC. [Concomitant]
     Active Substance: GARLIC
  5. NATURE?THROID [Concomitant]
     Active Substance: THYROID, PORCINE
  6. CAYENNE [Concomitant]
  7. XARELTO [Suspect]
     Active Substance: RIVAROXABAN
     Indication: ANTICOAGULANT THERAPY
     Dosage: ?          QUANTITY:1 TABLET(S);OTHER FREQUENCY:1 DAILY EVENING;?
     Route: 048
     Dates: start: 20180719, end: 20180802

REACTIONS (10)
  - Fatigue [None]
  - Contusion [None]
  - Gingival bleeding [None]
  - Depression [None]
  - Gingival swelling [None]
  - Blister [None]
  - Allergic reaction to excipient [None]
  - Anxiety [None]
  - Therapy cessation [None]
  - Epistaxis [None]

NARRATIVE: CASE EVENT DATE: 20180802
